FAERS Safety Report 15767434 (Version 3)
Quarter: 2019Q1

REPORT INFORMATION
  Report Type: Report from Study
  Country: None (occurrence: TR)
  Receive Date: 20181227
  Receipt Date: 20190322
  Transmission Date: 20190417
  Serious: Yes (Death, Life-Threatening, Hospitalization)
  Sender: FDA-Public Use
  Company Number: TR-ABBVIE-18S-161-2603815-00

PATIENT
  Age: 77 Year
  Sex: Male
  Weight: 76 kg

DRUGS (6)
  1. DUODOPA [Suspect]
     Active Substance: CARBIDOPA\LEVODOPA
     Indication: PARKINSON^S DISEASE
     Dosage: MD(ML): 6,30 CD (ML): 3,00 ED (ML): 1,00
     Route: 050
     Dates: start: 20160307
  2. CIPRALEX [Concomitant]
     Active Substance: ESCITALOPRAM OXALATE
     Indication: PARKINSON^S DISEASE
     Route: 048
     Dates: start: 201708
  3. DUPHALAC [Concomitant]
     Active Substance: LACTULOSE
     Indication: PARKINSON^S DISEASE
     Route: 048
     Dates: start: 201708
  4. PANTO [Concomitant]
     Active Substance: PANTOPRAZOLE SODIUM
     Indication: PROPHYLAXIS
     Route: 048
     Dates: start: 201708
  5. PLAVIX [Concomitant]
     Active Substance: CLOPIDOGREL BISULFATE
     Indication: ANTICOAGULANT THERAPY
     Route: 048
     Dates: start: 201708
  6. LIPITOR [Concomitant]
     Active Substance: ATORVASTATIN CALCIUM
     Indication: CARDIOVASCULAR DISORDER
     Route: 048
     Dates: start: 201708

REACTIONS (7)
  - Asphyxia [Fatal]
  - Fall [Recovered/Resolved]
  - Choking [Recovered/Resolved]
  - Cardiac dysfunction [Fatal]
  - Head injury [Recovered/Resolved]
  - Loss of consciousness [Fatal]
  - Cerebral haemorrhage [Recovered/Resolved]

NARRATIVE: CASE EVENT DATE: 20181220
